FAERS Safety Report 24232285 (Version 1)
Quarter: 2024Q3

REPORT INFORMATION
  Report Type: Spontaneous
  Country: PL (occurrence: PL)
  Receive Date: 20240821
  Receipt Date: 20240821
  Transmission Date: 20241016
  Serious: Yes (Disabling)
  Sender: AUROBINDO
  Company Number: PL-URPL-2-1002-2020

PATIENT
  Age: 79 Year
  Sex: Male
  Weight: 80 kg

DRUGS (1)
  1. LEVOFLOXACIN HEMIHYDRATE [Suspect]
     Active Substance: LEVOFLOXACIN
     Indication: Bacterial test positive
     Dosage: 500 MILLIGRAM, EVERY OTHER DAY
     Route: 048
     Dates: start: 20200919

REACTIONS (6)
  - Tendon pain [Recovering/Resolving]
  - Tenosynovitis [Recovering/Resolving]
  - Gait disturbance [Recovering/Resolving]
  - Pain in extremity [Recovering/Resolving]
  - Synovitis [Recovering/Resolving]
  - Muscle oedema [Recovering/Resolving]

NARRATIVE: CASE EVENT DATE: 20200921
